FAERS Safety Report 25031266 (Version 1)
Quarter: 2025Q1

REPORT INFORMATION
  Report Type: Spontaneous
  Country: US (occurrence: None)
  Receive Date: 20250228
  Receipt Date: 20250228
  Transmission Date: 20250409
  Serious: No
  Sender: FDA-CTU
  Company Number: None

PATIENT

DRUGS (1)
  1. OPSUMIT [Suspect]
     Active Substance: MACITENTAN

REACTIONS (5)
  - Dyspnoea [None]
  - Hypoxia [None]
  - Blood potassium increased [None]
  - Nasopharyngitis [None]
  - Pulmonary hypertension [None]
